FAERS Safety Report 10643280 (Version 1)
Quarter: 2014Q4

REPORT INFORMATION
  Report Type: Report from Study
  Country: US (occurrence: None)
  Receive Date: 20141128
  Receipt Date: 20141128
  Transmission Date: 20150529
  Serious: Yes (Other)
  Sender: FDA-Public Use
  Company Number: 1930515

PATIENT
  Age: 68 Year
  Sex: Male
  Weight: 69.6 kg

DRUGS (4)
  1. PENTOSTATINE [Suspect]
     Active Substance: PENTOSTATIN
     Indication: CHRONIC LYMPHOCYTIC LEUKAEMIA
     Dosage: 4 MG/M2 MILLIGRAM (S)/SQ.METER
     Dates: start: 20090921
  2. NEULASTA [Concomitant]
     Active Substance: PEGFILGRASTIM
  3. CYCLOPHOSPHAMIDE. [Suspect]
     Active Substance: CYCLOPHOSPHAMIDE
     Indication: CHRONIC LYMPHOCYTIC LEUKAEMIA
     Dosage: 600 MG/M2 MILLIGRAM(S)/SQ. METER
     Dates: start: 20090921
  4. RITUXIMAB [Suspect]
     Active Substance: RITUXIMAB
     Indication: CHRONIC LYMPHOCYTIC LEUKAEMIA
     Route: 042
     Dates: start: 20090921

REACTIONS (1)
  - Fatigue [None]

NARRATIVE: CASE EVENT DATE: 20091101
